FAERS Safety Report 11920138 (Version 3)
Quarter: 2016Q1

REPORT INFORMATION
  Report Type: Spontaneous
  Country: FR (occurrence: FR)
  Receive Date: 20160115
  Receipt Date: 20160203
  Transmission Date: 20160526
  Serious: Yes (Hospitalization, Other)
  Sender: FDA-Public Use
  Company Number: FR-PFIZER INC-2016010425

PATIENT
  Age: 76 Year
  Sex: Female

DRUGS (14)
  1. PROFENID [Concomitant]
     Active Substance: KETOPROFEN
     Indication: BACK PAIN
     Dosage: UNK
     Dates: start: 20151218
  2. COOLMETEC [Interacting]
     Active Substance: HYDROCHLOROTHIAZIDE\OLMESARTAN MEDOXOMIL
     Indication: HYPERTENSION
     Dosage: 1 DF (20/12.5), 1X/DAY
     Route: 048
     Dates: end: 20151221
  3. ECONAZOLE [Concomitant]
     Active Substance: ECONAZOLE
     Dosage: UNK
  4. LAROXYL [Interacting]
     Active Substance: AMITRIPTYLINE
     Indication: PAIN
     Dosage: 25 MG, 1X/DAY (MORE THAN 5 YEARS AGO)
     Route: 048
     Dates: end: 20151221
  5. IXPRIM [Interacting]
     Active Substance: ACETAMINOPHEN\TRAMADOL HYDROCHLORIDE
     Indication: BACK PAIN
     Dosage: 2 DF, 3X/DAY
     Route: 048
     Dates: start: 20151218, end: 20151221
  6. IXPRIM [Interacting]
     Active Substance: ACETAMINOPHEN\TRAMADOL HYDROCHLORIDE
     Indication: PAIN
  7. IMOVANE [Interacting]
     Active Substance: ZOPICLONE
     Dosage: UNK
     Route: 048
     Dates: start: 20151224
  8. IMOVANE [Interacting]
     Active Substance: ZOPICLONE
     Indication: SLEEP DISORDER
     Dosage: 1 DF, 1X/DAY
     Route: 048
     Dates: end: 20151221
  9. LAROXYL [Interacting]
     Active Substance: AMITRIPTYLINE
     Dosage: UNK
     Route: 048
     Dates: start: 20151224
  10. ADENURIC [Concomitant]
     Active Substance: FEBUXOSTAT
     Dosage: UNK
  11. LYRICA [Suspect]
     Active Substance: PREGABALIN
     Indication: PAIN
     Dosage: 75 MG, 2X/DAY
     Route: 048
     Dates: end: 20151221
  12. LYRICA [Interacting]
     Active Substance: PREGABALIN
     Dosage: UNK
     Route: 048
     Dates: start: 20151224
  13. VOLTARENE [Concomitant]
     Active Substance: DICLOFENAC SODIUM
     Dosage: UNK
  14. INEXIUM [Concomitant]
     Active Substance: ESOMEPRAZOLE
     Dosage: UNK

REACTIONS (5)
  - Hypotension [Recovered/Resolved]
  - Acute kidney injury [Unknown]
  - Fall [Recovered/Resolved]
  - Drug interaction [Recovered/Resolved]
  - Dizziness [Recovered/Resolved]

NARRATIVE: CASE EVENT DATE: 20151221
